FAERS Safety Report 9780679 (Version 1)
Quarter: 2013Q4

REPORT INFORMATION
  Report Type: Spontaneous
  Country: CH (occurrence: CH)
  Receive Date: 20131224
  Receipt Date: 20131224
  Transmission Date: 20140711
  Serious: Yes (Hospitalization)
  Sender: FDA-Public Use
  Company Number: CH-ASTRAZENECA-2013SE92765

PATIENT
  Age: 69 Year
  Sex: Female
  Weight: 90 kg

DRUGS (10)
  1. ZESTORETIC [Suspect]
     Indication: ESSENTIAL HYPERTENSION
     Dosage: 12.5/20 MG, 1DF DAILY
     Route: 048
     Dates: end: 20131122
  2. OPTIFEN [Suspect]
     Indication: BACK PAIN
     Route: 048
     Dates: start: 20131111, end: 20131122
  3. PONSTAN [Suspect]
     Indication: BACK PAIN
     Dosage: 1-2 TABLETS, 500 MG (ABOUT TWICE WEEKLY).
     Route: 048
     Dates: end: 20131110
  4. NOVALGIN [Concomitant]
     Route: 048
     Dates: start: 20131111, end: 20131125
  5. ESOMEPRAZOLE [Concomitant]
     Route: 048
     Dates: start: 20131111, end: 20131126
  6. TRAMADOL [Concomitant]
     Route: 048
     Dates: start: 20131111, end: 20131122
  7. BYDUREON [Concomitant]
     Route: 058
     Dates: start: 201305, end: 20131122
  8. METFIN [Concomitant]
     Route: 048
     Dates: start: 201305
  9. METFIN [Concomitant]
     Dates: start: 20131127
  10. EUTHYROX [Concomitant]
     Route: 048

REACTIONS (6)
  - Metabolic acidosis [Recovered/Resolved]
  - Dyspnoea [Recovered/Resolved]
  - Back pain [Recovered/Resolved]
  - Abdominal pain upper [Recovered/Resolved]
  - Renal failure acute [Recovered/Resolved]
  - Hyperkalaemia [Recovered/Resolved]
